FAERS Safety Report 25659163 (Version 1)
Quarter: 2025Q3

REPORT INFORMATION
  Report Type: Spontaneous
  Country: EU (occurrence: EU)
  Receive Date: 20250808
  Receipt Date: 20250808
  Transmission Date: 20251020
  Serious: Yes (Hospitalization)
  Sender: BOEHRINGER INGELHEIM
  Company Number: None

PATIENT
  Age: 90 Year
  Sex: Male

DRUGS (4)
  1. PRADAXA [Suspect]
     Active Substance: DABIGATRAN ETEXILATE MESYLATE
     Indication: Atrial fibrillation
     Dates: end: 20210615
  2. TRIPLIXAM 10 MG + 2,5 MG + 10 MG TABLETKI POWLEKANE [Concomitant]
     Indication: Product used for unknown indication
  3. LOKREN 20 MG TABLETKI POWLEKANE [Concomitant]
     Indication: Hypertension
     Dosage: THERAPY ONGOING
  4. DIGOXIN TEVA 100 ?G TABLETKI [Concomitant]
     Indication: Atrial fibrillation
     Dosage: THERAPY ONGOING

REACTIONS (2)
  - Gastrointestinal haemorrhage [Recovering/Resolving]
  - Normocytic anaemia [Recovering/Resolving]

NARRATIVE: CASE EVENT DATE: 20210615
